FAERS Safety Report 23831423 (Version 1)
Quarter: 2024Q2

REPORT INFORMATION
  Report Type: Spontaneous
  Country: US (occurrence: US)
  Receive Date: 20240508
  Receipt Date: 20240508
  Transmission Date: 20240716
  Serious: No
  Sender: FDA-Public Use
  Company Number: US-BAYER-2024A065417

PATIENT
  Age: 81 Year
  Sex: Female
  Weight: 49.9 kg

DRUGS (16)
  1. CLARITIN [Suspect]
     Active Substance: LORATADINE
     Indication: Product used for unknown indication
  2. TYVASO [Suspect]
     Active Substance: TREPROSTINIL
     Indication: Pulmonary arterial hypertension
     Dosage: 12 ?G, QID
     Route: 055
     Dates: start: 20240329
  3. FLONASE [Suspect]
     Active Substance: FLUTICASONE PROPIONATE
     Indication: Product used for unknown indication
     Dosage: UNK
  4. MUCINEX [Suspect]
     Active Substance: GUAIFENESIN
     Indication: Product used for unknown indication
  5. PROZAC [Concomitant]
     Active Substance: FLUOXETINE HYDROCHLORIDE
  6. MAGNESIUM [Concomitant]
     Active Substance: MAGNESIUM
  7. ALBUTEROL SULFATE [Concomitant]
     Active Substance: ALBUTEROL SULFATE
  8. CRANBERRY [Concomitant]
     Active Substance: CRANBERRY
  9. LIPITOR [Concomitant]
     Active Substance: ATORVASTATIN CALCIUM
  10. LEVOTHYROXINE SODIUM [Concomitant]
     Active Substance: LEVOTHYROXINE SODIUM
  11. CELLCEPT [Concomitant]
     Active Substance: MYCOPHENOLATE MOFETIL
  12. XANAX [Concomitant]
     Active Substance: ALPRAZOLAM
  13. PREDNISONE [Concomitant]
     Active Substance: PREDNISONE
  14. FOLIC ACID [Concomitant]
     Active Substance: FOLIC ACID
  15. OXYGEN [Concomitant]
     Active Substance: OXYGEN
  16. DAPSONE [Concomitant]
     Active Substance: DAPSONE

REACTIONS (1)
  - Therapy non-responder [None]
